FAERS Safety Report 12591854 (Version 1)
Quarter: 2016Q3

REPORT INFORMATION
  Report Type: Spontaneous
  Country: US (occurrence: None)
  Receive Date: 20160725
  Receipt Date: 20160725
  Transmission Date: 20161109
  Serious: Yes (Hospitalization)
  Sender: FDA-Public Use
  Company Number: None

PATIENT
  Age: 33 Year
  Sex: Female

DRUGS (2)
  1. ALECENSA [Suspect]
     Active Substance: ALECTINIB HYDROCHLORIDE
     Indication: LUNG NEOPLASM MALIGNANT
     Route: 048
     Dates: start: 20160105, end: 20160628
  2. ZYKADIA [Concomitant]
     Active Substance: CERITINIB

REACTIONS (3)
  - Pulmonary oedema [None]
  - Brain neoplasm [None]
  - Infection [None]

NARRATIVE: CASE EVENT DATE: 20160628
